FAERS Safety Report 5896705-6 (Version None)
Quarter: 2008Q3

REPORT INFORMATION
  Report Type: 
  Country: None (occurrence: None)
  Receive Date: 20080924
  Receipt Date: 20080915
  Transmission Date: 20090109
  Serious: Yes (Other)
  Sender: FDA-Public Use
  Company Number: US-PFIZER INC-2008078211

PATIENT
  Sex: Female

DRUGS (2)
  1. NORVASC [Suspect]
     Indication: HYPERTENSION
     Dates: start: 20030701
  2. NORVASC [Suspect]
     Dates: start: 20030901

REACTIONS (3)
  - CATARACT OPERATION [None]
  - FATIGUE [None]
  - OEDEMA PERIPHERAL [None]
